FAERS Safety Report 10606978 (Version 1)
Quarter: 2014Q4

REPORT INFORMATION
  Report Type: Spontaneous
  Country: FR (occurrence: FR)
  Receive Date: 20141125
  Receipt Date: 20141125
  Transmission Date: 20150529
  Serious: Yes (Life-Threatening, Hospitalization)
  Sender: FDA-Public Use
  Company Number: FR-PFIZER INC-2014321748

PATIENT
  Age: 50 Year
  Sex: Female

DRUGS (4)
  1. EFFEXOR [Suspect]
     Active Substance: VENLAFAXINE HYDROCHLORIDE
     Indication: DEPRESSION
     Dosage: 75 MG IN THE MORNING, 37.5 MG AT NOON
     Route: 048
     Dates: end: 20111127
  2. BISOPROLOL FUMARATE. [Concomitant]
     Active Substance: BISOPROLOL FUMARATE
     Dosage: UNK
  3. ALDALIX [Concomitant]
     Active Substance: FUROSEMIDE SODIUM\SPIRONOLACTONE
     Dosage: UNK
  4. SPRYCEL [Suspect]
     Active Substance: DASATINIB
     Indication: CHRONIC MYELOID LEUKAEMIA
     Dosage: 100 MG, 1X/DAY
     Route: 048
     Dates: start: 2003, end: 20111127

REACTIONS (2)
  - Subarachnoid haemorrhage [Recovered/Resolved with Sequelae]
  - Intraventricular haemorrhage [Recovered/Resolved with Sequelae]

NARRATIVE: CASE EVENT DATE: 20111127
